FAERS Safety Report 7561610-6 (Version None)
Quarter: 2011Q2

REPORT INFORMATION
  Report Type: 
  Country: None (occurrence: None)
  Receive Date: 20110621
  Receipt Date: 20110606
  Transmission Date: 20111010
  Serious: Yes (Other)
  Sender: FDA-Public Use
  Company Number: US-JUTA GMBH-2011-08440

PATIENT
  Sex: Male

DRUGS (2)
  1. LAMOTRIGINE [Suspect]
     Indication: DRUG EXPOSURE DURING PREGNANCY
     Route: 064
  2. LAMOTRIGINE [Suspect]
     Indication: DRUG EXPOSURE VIA BREAST MILK

REACTIONS (2)
  - OXYGEN SATURATION DECREASED [None]
  - PILONIDAL CYST CONGENITAL [None]
